FAERS Safety Report 6233873-0 (Version None)
Quarter: 2009Q2

REPORT INFORMATION
  Report Type: 
  Country: None (occurrence: None)
  Receive Date: 20090618
  Receipt Date: 20090610
  Transmission Date: 20091009
  Serious: Yes (Other)
  Sender: FDA-Public Use
  Company Number: GB-BRISTOL-MYERS SQUIBB COMPANY-14662209

PATIENT
  Sex: Male

DRUGS (1)
  1. KENALOG [Suspect]
     Indication: SEASONAL ALLERGY
     Dosage: TAKEN 2-3 TIMES

REACTIONS (1)
  - TYPE 1 DIABETES MELLITUS [None]
